FAERS Safety Report 12929830 (Version 1)
Quarter: 2016Q4

REPORT INFORMATION
  Report Type: Report from Study
  Country: CZ (occurrence: CZ)
  Receive Date: 20161110
  Receipt Date: 20161110
  Transmission Date: 20170207
  Serious: Yes (Hospitalization, Other)
  Sender: FDA-Public Use
  Company Number: CZ-HIKMA PHARMACEUTICALS CO. LTD-2016CZ011523

PATIENT

DRUGS (7)
  1. REMSIMA [Suspect]
     Active Substance: INFLIXIMAB
     Dosage: 450 MG, UNK
     Route: 065
     Dates: start: 20160105, end: 20160105
  2. REMSIMA [Suspect]
     Active Substance: INFLIXIMAB
     Dosage: 450 MG, UNK
     Route: 065
     Dates: start: 20160322, end: 20160322
  3. REMSIMA [Suspect]
     Active Substance: INFLIXIMAB
     Dosage: 450 MG, UNK
     Route: 065
     Dates: start: 20160503, end: 20160503
  4. REMSIMA [Suspect]
     Active Substance: INFLIXIMAB
     Dosage: 450 MG, UNK
     Route: 065
     Dates: start: 20151208, end: 20151208
  5. REMSIMA [Suspect]
     Active Substance: INFLIXIMAB
     Dosage: 450 MG, UNK
     Route: 065
     Dates: start: 20160216, end: 20160216
  6. REMSIMA [Suspect]
     Active Substance: INFLIXIMAB
     Indication: ANKYLOSING SPONDYLITIS
     Dosage: 460 MG, UNK
     Route: 065
     Dates: start: 20151125, end: 20151125
  7. REMSIMA [Suspect]
     Active Substance: INFLIXIMAB
     Dosage: 450 MG, UNK
     Route: 065
     Dates: start: 20160614, end: 20160614

REACTIONS (1)
  - Ureterolithiasis [Recovering/Resolving]

NARRATIVE: CASE EVENT DATE: 20161024
